FAERS Safety Report 20918183 (Version 1)
Quarter: 2022Q2

REPORT INFORMATION
  Report Type: Spontaneous
  Country: US (occurrence: US)
  Receive Date: 20220606
  Receipt Date: 20220606
  Transmission Date: 20220721
  Serious: No
  Sender: FDA-Public Use
  Company Number: US-BRISTOL-MYERS SQUIBB COMPANY-2022-038406

PATIENT
  Age: 87 Year
  Sex: Male

DRUGS (15)
  1. REVLIMID [Suspect]
     Active Substance: LENALIDOMIDE
     Indication: Plasma cell myeloma
     Route: 048
  2. REVLIMID [Suspect]
     Active Substance: LENALIDOMIDE
     Dosage: TAKE 5 MG BY MOUTH DAILY FOR 14 DAYS THEN 7 DAYS OFF.
     Route: 048
     Dates: start: 20151119
  3. SOD BICARB [Concomitant]
  4. VALTREX [Concomitant]
     Active Substance: VALACYCLOVIR HYDROCHLORIDE
  5. TRIHEXYPHENIDYL [Concomitant]
     Active Substance: TRIHEXYPHENIDYL
  6. AZELASTINE [Concomitant]
     Active Substance: AZELASTINE
  7. CALCIUM P.A.S. [Concomitant]
  8. COUMADIN [Concomitant]
     Active Substance: WARFARIN SODIUM
  9. CYCLOPHOSPH [Concomitant]
  10. DEXAMETHASONE [Concomitant]
     Active Substance: DEXAMETHASONE
  11. VITAMINS [Concomitant]
     Active Substance: VITAMINS
  12. NIFEDIPINE [Concomitant]
     Active Substance: NIFEDIPINE
  13. POTASSIUM [Concomitant]
     Active Substance: POTASSIUM
  14. VELCADE [Concomitant]
     Active Substance: BORTEZOMIB
  15. VITAMIN D3 [Concomitant]
     Active Substance: CHOLECALCIFEROL

REACTIONS (1)
  - Somnolence [Unknown]
